FAERS Safety Report 15306305 (Version 1)
Quarter: 2018Q4

REPORT INFORMATION
  Report Type: Spontaneous
  Country: US (occurrence: US)
  Receive Date: 20180822
  Receipt Date: 20180822
  Transmission Date: 20190204
  Serious: Yes (Other)
  Sender: FDA-Public Use
  Company Number: US-AUROBINDO-AUR-APL-2018-041871

PATIENT
  Age: 49 Year
  Sex: Female

DRUGS (3)
  1. CARBOPLATIN. [Suspect]
     Active Substance: CARBOPLATIN
     Indication: NON-SMALL CELL LUNG CANCER
     Dosage: AN AREA UNDER THE CURVE OF 5 () ; CYCLICAL
     Route: 065
  2. PEMETREXED. [Suspect]
     Active Substance: PEMETREXED
     Indication: NON-SMALL CELL LUNG CANCER
     Dosage: CYCLICAL
     Route: 065
  3. PEMBROLIZUMAB. [Suspect]
     Active Substance: PEMBROLIZUMAB
     Indication: NON-SMALL CELL LUNG CANCER
     Dosage: EVERY 3 WEEKS ; CYCLICAL
     Route: 065

REACTIONS (1)
  - Hypothyroidism [Recovering/Resolving]
